FAERS Safety Report 9106312 (Version 2)
Quarter: 2013Q2

REPORT INFORMATION
  Report Type: Report from Study
  Country: US (occurrence: US)
  Receive Date: 20130220
  Receipt Date: 20130529
  Transmission Date: 20140414
  Serious: Yes (Hospitalization)
  Sender: FDA-Public Use
  Company Number: US-JNJFOC-20130209289

PATIENT
  Age: 19 Year
  Sex: Female
  Weight: 68.2 kg

DRUGS (6)
  1. INFLIXIMAB, RECOMBINANT [Suspect]
     Indication: CROHN^S DISEASE
     Route: 042
  2. ORTHO CYCLEN [Concomitant]
     Route: 065
  3. HUMIRA [Concomitant]
     Dates: start: 20120312, end: 20130325
  4. 5-ASA [Concomitant]
     Route: 048
  5. IRON [Concomitant]
  6. MULTIVITAMINS [Concomitant]

REACTIONS (1)
  - Crohn^s disease [Recovered/Resolved]
